FAERS Safety Report 8889910 (Version 3)
Quarter: 2013Q1

REPORT INFORMATION
  Report Type: Spontaneous
  Country: US (occurrence: US)
  Receive Date: 20121107
  Receipt Date: 20130107
  Transmission Date: 20140127
  Serious: Yes (Other)
  Sender: FDA-Public Use
  Company Number: US-PFIZER INC-2012276960

PATIENT
  Age: 65 Year
  Sex: Female
  Weight: 131 kg

DRUGS (18)
  1. BOSULIF [Suspect]
     Indication: CHRONIC MYELOID LEUKAEMIA
     Dosage: 100 MG, UNK
     Dates: start: 20110606
  2. BOSULIF [Suspect]
     Dosage: 100 MG, 5X/DAY
     Route: 048
     Dates: start: 20121008, end: 20121030
  3. GLUCOPHAGE [Concomitant]
     Dosage: UNK
  4. LEVOTHYROXINE [Concomitant]
     Dosage: UNK
  5. HYDROCHLOROTHIAZIDE [Concomitant]
     Indication: HYPERTENSION
     Dosage: UNK
  6. LISINOPRIL [Concomitant]
     Indication: HYPERTENSION
     Dosage: UNK
  7. ZESTORETIC [Concomitant]
     Dosage: 1 DF (20/12.5 MG), 2X/DAY
     Route: 048
  8. LOPRESSOR [Concomitant]
     Dosage: 25 MG, 2X/DAY
     Route: 048
  9. K-DUR [Concomitant]
     Dosage: 20 MEQ, 2X/DAY
  10. SYNTHROID [Concomitant]
     Dosage: 125 UG, 1X/DAY
     Route: 048
  11. MYCOLOG II [Concomitant]
     Dosage: 100,000-0.1 UNIT/GRAM% APPLY TO AFFECTED AREA 2 TIMES DAILY
     Route: 061
  12. OLOPATADINE HYDROCHLORIDE [Concomitant]
     Dosage: 0.2 % 1 GTT BOTH EYES, 1X/DAY
     Route: 047
  13. EPINASTINE [Concomitant]
     Dosage: 0.05% 1 GTT, BOTH EYES 2X/DAY
  14. COMPAZINE [Concomitant]
     Indication: NAUSEA
     Dosage: 10 MG, 3X/DAY AS NEEDED
     Route: 048
  15. GARLIC [Concomitant]
     Dosage: 2 DF, 1X/DAY
     Route: 048
  16. GERITOL [Concomitant]
     Dosage: 1 DF, 1X/DAY
     Route: 048
  17. ECHINACEA EXTRACT [Concomitant]
     Dosage: 1 DF, ALTERNATE DAY
     Route: 048
  18. OMEGA 3 [Concomitant]
     Dosage: 1000 MG, ALTERNATE DAY
     Route: 048

REACTIONS (18)
  - Abscess [Recovering/Resolving]
  - Pleural effusion [Unknown]
  - Dyspnoea [Unknown]
  - Neuralgia [Unknown]
  - Pain [Recovering/Resolving]
  - Pain in extremity [Recovering/Resolving]
  - Myalgia [Recovering/Resolving]
  - Arthralgia [Recovering/Resolving]
  - Joint swelling [Recovering/Resolving]
  - Local swelling [Recovering/Resolving]
  - Skin exfoliation [Unknown]
  - Pruritus [Recovering/Resolving]
  - Dry skin [Recovering/Resolving]
  - Skin discolouration [Unknown]
  - Local swelling [Unknown]
  - Diarrhoea [Recovering/Resolving]
  - Drug intolerance [Unknown]
  - Fatigue [Unknown]
